FAERS Safety Report 25065980 (Version 1)
Quarter: 2025Q1

REPORT INFORMATION
  Report Type: Spontaneous
  Country: IE (occurrence: IE)
  Receive Date: 20250312
  Receipt Date: 20250312
  Transmission Date: 20250408
  Serious: Yes (Death)
  Sender: GENMAB
  Company Number: IE-ABBVIE-6171477

PATIENT

DRUGS (1)
  1. EPCORITAMAB [Suspect]
     Active Substance: EPCORITAMAB
     Indication: Follicular lymphoma
     Route: 065

REACTIONS (1)
  - Death [Fatal]
